FAERS Safety Report 8154125-8 (Version None)
Quarter: 2012Q1

REPORT INFORMATION
  Report Type: 
  Country: None (occurrence: None)
  Receive Date: 20120215
  Receipt Date: 20120206
  Transmission Date: 20120608
  Serious: Yes (Hospitalization)
  Sender: FDA-Public Use
  Company Number: 2012MA001719

PATIENT
  Age: 30 Year
  Sex: Male

DRUGS (10)
  1. VANCOMYCIN [Concomitant]
  2. CLONAZEPAM [Concomitant]
  3. MORPHINE [Concomitant]
  4. SERTRALINE HYDROCHLORIDE [Concomitant]
  5. DOXYCYCLINE [Concomitant]
  6. METRONIDAZOLE [Concomitant]
  7. METOCLOPRAMIDE [Suspect]
     Indication: NAUSEA
     Dosage: 10 MG;BID
  8. METOCLOPRAMIDE [Suspect]
     Indication: VOMITING
     Dosage: 10 MG;BID
  9. OXYCODONE HCL [Concomitant]
  10. ONDANSETRON [Concomitant]

REACTIONS (11)
  - APPENDICITIS [None]
  - BLOOD PRESSURE SYSTOLIC INCREASED [None]
  - ALANINE AMINOTRANSFERASE INCREASED [None]
  - TACHYPHRENIA [None]
  - SUICIDAL IDEATION [None]
  - RESTLESSNESS [None]
  - ANXIETY [None]
  - BLOOD GLUCOSE INCREASED [None]
  - HOMICIDAL IDEATION [None]
  - AGITATION [None]
  - INSOMNIA [None]
